FAERS Safety Report 6538519-X (Version None)
Quarter: 2010Q1

REPORT INFORMATION
  Report Type: 
  Country: None (occurrence: None)
  Receive Date: 20100111
  Receipt Date: 20091229
  Transmission Date: 20100710
  Serious: Yes (Other)
  Sender: FDA-Public Use
  Company Number: 2010AL000079

PATIENT
  Age: 51 Year
  Sex: Female

DRUGS (2)
  1. DIAZEPAM [Suspect]
     Indication: ENDOSCOPY
     Dosage: 10 MG; IV
     Route: 042
  2. DEMEROL [Concomitant]

REACTIONS (2)
  - OXYGEN SATURATION DECREASED [None]
  - SEDATION [None]
